FAERS Safety Report 19278442 (Version 1)
Quarter: 2021Q2

REPORT INFORMATION
  Report Type: Spontaneous
  Country: US (occurrence: US)
  Receive Date: 20210520
  Receipt Date: 20210520
  Transmission Date: 20210717
  Serious: Yes (Other)
  Sender: FDA-Public Use
  Company Number: US-DRREDDYS-USA/USA/21/0135346

PATIENT
  Age: 32 Year
  Sex: Female

DRUGS (1)
  1. ZENATANE [Suspect]
     Active Substance: ISOTRETINOIN
     Indication: PRODUCT USED FOR UNKNOWN INDICATION
     Dosage: RMA ISSUE DATE:1/13/2021 1:23:41 PM,2/14/2021 6:36:52 PM,3/13/2021 1:27:55 PM AND 4/8/2021 7:12:20 P
     Route: 065

REACTIONS (2)
  - Muscle twitching [Unknown]
  - Depression [Unknown]
